FAERS Safety Report 20990816 (Version 2)
Quarter: 2025Q2

REPORT INFORMATION
  Report Type: Spontaneous
  Country: FR (occurrence: FR)
  Receive Date: 20220622
  Receipt Date: 20250621
  Transmission Date: 20250717
  Serious: Yes (Other)
  Sender: AUROBINDO
  Company Number: FR-RENAUDINFR-2022000860

PATIENT
  Age: 29 Year
  Sex: Female

DRUGS (4)
  1. LIDOCAINE [Suspect]
     Active Substance: LIDOCAINE
     Indication: Local anaesthesia
     Route: 051
  2. LIDOCAINE [Suspect]
     Active Substance: LIDOCAINE
     Route: 051
  3. LIDOCAINE [Suspect]
     Active Substance: LIDOCAINE
     Route: 051
  4. EPINEPHRINE [Suspect]
     Active Substance: EPINEPHRINE
     Indication: Product used for unknown indication
     Route: 065

REACTIONS (4)
  - Embolia cutis medicamentosa [Recovered/Resolved]
  - Exposure during pregnancy [Recovered/Resolved]
  - Pain [Recovered/Resolved]
  - Burning sensation [Recovered/Resolved]
